FAERS Safety Report 6124446-9 (Version None)
Quarter: 2009Q1

REPORT INFORMATION
  Report Type: 
  Country: None (occurrence: None)
  Receive Date: 20090317
  Receipt Date: 20090317
  Transmission Date: 20090719
  Serious: Yes (Hospitalization)
  Sender: FDA-Public Use
  Company Number: None

PATIENT
  Age: 19 Year
  Sex: Female
  Weight: 73.3 kg

DRUGS (4)
  1. I-131 MIBG 18MCI/KG [Suspect]
     Indication: NEUROBLASTOMA
     Dosage: 1000MCI I-131 MIBG IV
     Route: 042
     Dates: start: 20090203
  2. POTASSIUM PERCHORATE [Concomitant]
  3. SETRATIN LAB [Concomitant]
  4. LEVOTHYROXINE SODIUM [Concomitant]

REACTIONS (2)
  - CENTRAL NERVOUS SYSTEM LESION [None]
  - GRAND MAL CONVULSION [None]
